FAERS Safety Report 23957931 (Version 2)
Quarter: 2024Q2

REPORT INFORMATION
  Report Type: Report from Study
  Country: US (occurrence: US)
  Receive Date: 20240610
  Receipt Date: 20240612
  Transmission Date: 20240716
  Serious: No
  Sender: FDA-Public Use
  Company Number: US-PFIZER INC-202400188373

PATIENT
  Age: 71 Year
  Sex: Male
  Weight: 86.64 kg

DRUGS (1)
  1. TUKYSA [Suspect]
     Active Substance: TUCATINIB
     Indication: Colon cancer stage IV
     Dosage: 150MG 2 TABLETS EVERY 12 HOURS BY MOUTH
     Route: 048
     Dates: start: 20240411, end: 20240605

REACTIONS (1)
  - Neoplasm progression [Unknown]
